FAERS Safety Report 13961044 (Version 3)
Quarter: 2018Q2

REPORT INFORMATION
  Report Type: Report from Study
  Country: CA (occurrence: CA)
  Receive Date: 20170912
  Receipt Date: 20180425
  Transmission Date: 20180711
  Serious: Yes (Hospitalization)
  Sender: FDA-Public Use
  Company Number: CA-GLAXOSMITHKLINE-CA2017GSK104822

PATIENT
  Sex: Female

DRUGS (9)
  1. SPIRIVA RESPIMAT [Concomitant]
     Active Substance: TIOTROPIUM BROMIDE
     Indication: ASTHMA
     Dosage: UNK
  2. PULMICORT TURBUHALER [Concomitant]
     Active Substance: BUDESONIDE
     Indication: ASTHMA
     Dosage: 2 PUFF(S), BID
  3. PREDNISONE. [Suspect]
     Active Substance: PREDNISONE
     Indication: PRODUCT USED FOR UNKNOWN INDICATION
     Dosage: UNK
  4. SALBUTAMOL SULPHATE [Suspect]
     Active Substance: ALBUTEROL SULFATE
     Indication: ASTHMA
     Dosage: UNK UNK, PRN
  5. OMNARIS [Concomitant]
     Active Substance: CICLESONIDE
     Indication: MULTIPLE ALLERGIES
     Dosage: UNK
  6. SALINE NASAL RINSE [Concomitant]
     Indication: MULTIPLE ALLERGIES
     Dosage: UNK
  7. XOLAIR [Concomitant]
     Active Substance: OMALIZUMAB
     Indication: ASTHMA
     Dosage: UNK
     Dates: start: 2013, end: 2016
  8. PATADAY OPHTHALMIC DROPS 0.2% [Concomitant]
     Indication: MULTIPLE ALLERGIES
     Dosage: 1 DF, 1D, 1 DROP IN EACH EYE
     Route: 047
  9. SYMBICORT [Concomitant]
     Active Substance: BUDESONIDE\FORMOTEROL FUMARATE DIHYDRATE
     Indication: ASTHMA
     Dosage: 2 PUFF(S), BID

REACTIONS (6)
  - Ill-defined disorder [Unknown]
  - Drug effect decreased [Unknown]
  - Dyspnoea [Unknown]
  - Blood count abnormal [Unknown]
  - Respiratory symptom [Unknown]
  - Asthma [Unknown]
